FAERS Safety Report 7594823-8 (Version None)
Quarter: 2011Q3

REPORT INFORMATION
  Report Type: 
  Country: None (occurrence: None)
  Receive Date: 20110707
  Receipt Date: 20110624
  Transmission Date: 20111222
  Serious: Yes (Hospitalization)
  Sender: FDA-Public Use
  Company Number: US-ELI_LILLY_AND_COMPANY-US201106007727

PATIENT
  Sex: Male

DRUGS (3)
  1. HUMATROPE [Suspect]
     Indication: PITUITARY TUMOUR REMOVAL
     Dosage: 20 MG, QD
  2. SYNTHROID [Concomitant]
  3. CORTEF [Concomitant]

REACTIONS (3)
  - INCORRECT PRODUCT STORAGE [None]
  - JOINT INJURY [None]
  - FALL [None]
